FAERS Safety Report 9820274 (Version 1)
Quarter: 2013Q4

REPORT INFORMATION
  Report Type: Spontaneous
  Country: GB (occurrence: None)
  Receive Date: 20131024
  Receipt Date: 20131024
  Transmission Date: 20140711
  Serious: Yes (Hospitalization, Other)
  Sender: FDA-Public Use
  Company Number: E2B_00001222

PATIENT
  Age: 86 Year
  Sex: Female

DRUGS (5)
  1. QUETIAPINE [Suspect]
     Indication: CONFUSIONAL STATE
     Route: 048
  2. LANSOPRAZOLE (UNKNOWN) [Suspect]
     Indication: PRODUCT USED FOR UNKNOWN INDICATION
     Route: 048
  3. ATENOLOL [Concomitant]
  4. WARFARIN [Concomitant]
  5. NITROFURANTOIN [Concomitant]

REACTIONS (3)
  - Inappropriate antidiuretic hormone secretion [None]
  - Confusional state [None]
  - Hyponatraemia [None]
